FAERS Safety Report 7512375-5 (Version None)
Quarter: 2011Q2

REPORT INFORMATION
  Report Type: 
  Country: None (occurrence: None)
  Receive Date: 20110531
  Receipt Date: 20110518
  Transmission Date: 20111010
  Serious: Yes (Other)
  Sender: FDA-Public Use
  Company Number: US-SANOFI-AVENTIS-2011SA029054

PATIENT
  Age: 84 Year
  Sex: Female

DRUGS (1)
  1. ALLEGRA [Suspect]
     Route: 048

REACTIONS (4)
  - COLITIS ULCERATIVE [None]
  - SINUS DISORDER [None]
  - FATIGUE [None]
  - DRUG INEFFECTIVE [None]
